FAERS Safety Report 10300458 (Version 1)
Quarter: 2014Q3

REPORT INFORMATION
  Report Type: Spontaneous
  Country: JP (occurrence: JP)
  Receive Date: 20140713
  Receipt Date: 20140713
  Transmission Date: 20150326
  Serious: No
  Sender: FDA-Public Use
  Company Number: PHHY2012JP132224

PATIENT
  Age: 55 Year
  Sex: Female

DRUGS (3)
  1. CELESTAMIN [Concomitant]
     Dosage: UNK
  2. TASIGNA [Suspect]
     Active Substance: NILOTINIB
     Indication: CHRONIC MYELOID LEUKAEMIA
     Dosage: 800 MG, UNK
     Dates: start: 20110428
  3. LASIX [Concomitant]
     Active Substance: FUROSEMIDE
     Dosage: 20 MG, UNK

REACTIONS (2)
  - Rash [Unknown]
  - Anaemia [Unknown]

NARRATIVE: CASE EVENT DATE: 201107
